FAERS Safety Report 5657210-5 (Version None)
Quarter: 2008Q1

REPORT INFORMATION
  Report Type: 
  Country: None (occurrence: None)
  Receive Date: 20080307
  Receipt Date: 20080307
  Transmission Date: 20080703
  Serious: Yes (Other)
  Sender: FDA-Public Use
  Company Number: None

PATIENT
  Age: 59 Year
  Sex: Female
  Weight: 86.1834 kg

DRUGS (9)
  1. ONE A DAY WOMENS [Suspect]
     Indication: VITAMIN SUPPLEMENTATION
     Dosage: ORAL
     Route: 048
     Dates: start: 20070101
  2. ASPIRIN [Suspect]
     Dosage: 162 MG, QD, ORAL
     Route: 048
     Dates: start: 20070101
  3. NORVASC [Concomitant]
  4. COREG [Concomitant]
  5. AVAPRO [Concomitant]
  6. ENALAPRIL MALEATE [Concomitant]
  7. AVANDIA [Concomitant]
  8. ALLOPURINOL [Concomitant]
  9. CALCIUM [Concomitant]

REACTIONS (1)
  - BENIGN NEOPLASM OF THYROID GLAND [None]
